FAERS Safety Report 13493093 (Version 1)
Quarter: 2017Q2

REPORT INFORMATION
  Report Type: Spontaneous
  Country: US (occurrence: US)
  Receive Date: 20170427
  Receipt Date: 20170427
  Transmission Date: 20170830
  Serious: Yes (Other)
  Sender: FDA-Public Use
  Company Number: US-BAXALTA-2017BLT003258

PATIENT
  Age: 42 Year
  Sex: Male
  Weight: 63.1 kg

DRUGS (2)
  1. GAMMAGARD LIQUID [Suspect]
     Active Substance: HUMAN IMMUNOGLOBULIN G
     Indication: MULTIFOCAL MOTOR NEUROPATHY
     Dosage: 26 G AT 30ML/HR, 1X A DAY FOR 5 DAYS
     Dates: start: 20170222, end: 20170226
  2. GAMMAGARD LIQUID [Suspect]
     Active Substance: HUMAN IMMUNOGLOBULIN G
     Dosage: 66 G, TOTAL OVER 2 DAYS
     Route: 042
     Dates: start: 20170409, end: 20170410

REACTIONS (2)
  - Infusion site thrombosis [Recovering/Resolving]
  - Thrombophlebitis superficial [Recovering/Resolving]

NARRATIVE: CASE EVENT DATE: 20170222
